FAERS Safety Report 17178669 (Version 3)
Quarter: 2025Q3

REPORT INFORMATION
  Report Type: Spontaneous
  Country: GB (occurrence: GB)
  Receive Date: 20191219
  Receipt Date: 20250708
  Transmission Date: 20251020
  Serious: Yes (Other)
  Sender: AUROBINDO
  Company Number: GB-CHEPLA-C20193206

PATIENT
  Age: 3 Month
  Sex: Male

DRUGS (7)
  1. ZIDOVUDINE [Suspect]
     Active Substance: ZIDOVUDINE
     Indication: Perinatal HIV infection
     Route: 048
  2. ABACAVIR [Suspect]
     Active Substance: ABACAVIR
     Indication: Perinatal HIV infection
     Route: 065
  3. LAMIVUDINE [Suspect]
     Active Substance: LAMIVUDINE
     Indication: Perinatal HIV infection
     Route: 065
  4. NEVIRAPINE [Suspect]
     Active Substance: NEVIRAPINE
     Indication: Perinatal HIV infection
     Route: 065
  5. VALGANCICLOVIR [Suspect]
     Active Substance: VALGANCICLOVIR
     Indication: Congenital cytomegalovirus infection
     Route: 065
  6. GANCICLOVIR [Suspect]
     Active Substance: GANCICLOVIR
     Indication: Congenital cytomegalovirus infection
     Route: 042
  7. LOPINAVIR [Suspect]
     Active Substance: LOPINAVIR
     Indication: Perinatal HIV infection
     Route: 065

REACTIONS (1)
  - Pancytopenia [Recovered/Resolved]
